FAERS Safety Report 16036836 (Version 1)
Quarter: 2019Q1

REPORT INFORMATION
  Report Type: Spontaneous
  Country: US (occurrence: US)
  Receive Date: 20190305
  Receipt Date: 20190305
  Transmission Date: 20190418
  Serious: Yes (Death, Hospitalization)
  Sender: FDA-Public Use
  Company Number: PHEH2019US009554

PATIENT
  Sex: Female

DRUGS (2)
  1. BOSULIF [Suspect]
     Active Substance: BOSUTINIB MONOHYDRATE
     Indication: CHRONIC MYELOID LEUKAEMIA
     Dosage: 500 MG, QD
     Route: 048
     Dates: start: 201301
  2. GLEEVEC [Suspect]
     Active Substance: IMATINIB MESYLATE
     Indication: CHRONIC MYELOID LEUKAEMIA
     Dosage: 400 MG, QD
     Route: 048
     Dates: start: 201206, end: 201210

REACTIONS (10)
  - Sinusitis [Unknown]
  - Facial paresis [Unknown]
  - Depression [Unknown]
  - Abdominal pain upper [Unknown]
  - Facial paralysis [Unknown]
  - Death [Fatal]
  - Trismus [Unknown]
  - Herpes zoster [Unknown]
  - Headache [Unknown]
  - Bone pain [Unknown]
